FAERS Safety Report 5283784-2 (Version None)
Quarter: 2007Q1

REPORT INFORMATION
  Report Type: 
  Country: None (occurrence: None)
  Receive Date: 20061226
  Receipt Date: 20060217
  Transmission Date: 20070707
  Serious: Yes (Other)
  Sender: FDA-Public Use
  Company Number: 2006S1000038

PATIENT
  Age: 67 Year
  Sex: Male
  Weight: 89.9936 kg

DRUGS (1)
  1. ACITRETIN [Suspect]
     Indication: PITYRIASIS RUBRA PILARIS
     Dosage: 40 MG; QD; PO
     Route: 048
     Dates: start: 20000501, end: 20020901

REACTIONS (1)
  - ACUTE MYOCARDIAL INFARCTION [None]
